FAERS Safety Report 13077935 (Version 16)
Quarter: 2021Q3

REPORT INFORMATION
  Report Type: Report from Study
  Country: JP (occurrence: JP)
  Receive Date: 20170102
  Receipt Date: 20210708
  Transmission Date: 20211014
  Serious: Yes (Hospitalization, Other)
  Sender: FDA-Public Use
  Company Number: JP-ROCHE-1872772

PATIENT
  Age: 46 Year
  Sex: Male
  Weight: 74.3 kg

DRUGS (66)
  1. LANSOPRAZOLE. [Concomitant]
     Active Substance: LANSOPRAZOLE
     Dates: start: 20181017, end: 20190910
  2. ALLYLISOPROPYLACETYLUREA [Concomitant]
     Active Substance: APRONALIDE
     Dates: start: 20170615, end: 20170615
  3. AMOXICILLIN. [Concomitant]
     Active Substance: AMOXICILLIN
     Indication: RHINITIS
     Dates: start: 20170329, end: 20170405
  4. DL?METHYLEPHEDRINE HYDROCHLORIDE [Concomitant]
     Active Substance: METHYLEPHEDRINE HYDROCHLORIDE, (+/-)-
     Indication: RHINITIS
     Dates: start: 20170331, end: 20170401
  5. ISOTONIC SODIUM CHLORIDE SOLUTION KIT H [Concomitant]
     Indication: GASTROENTERITIS
     Dates: start: 20190318, end: 20190319
  6. GLYCERIN. [Concomitant]
     Active Substance: GLYCERIN
     Indication: STOMATITIS
     Dates: start: 20181114, end: 20181127
  7. TAZOPIPE [Concomitant]
     Active Substance: PIPERACILLIN SODIUM\TAZOBACTAM SODIUM
     Indication: BRONCHITIS BACTERIAL
     Dates: start: 20190222, end: 20190225
  8. CEFMETAZOLE SODIUM [Concomitant]
     Active Substance: CEFMETAZOLE SODIUM
     Indication: GASTROENTERITIS
     Route: 042
     Dates: start: 20190318, end: 20190320
  9. LEVOFLOXACIN. [Concomitant]
     Active Substance: LEVOFLOXACIN
     Indication: GASTROENTERITIS
     Dates: start: 20190321, end: 20190325
  10. ISOTONIC SODIUM CHLORIDE SOLUTION KIT H [Concomitant]
     Indication: RENAL IMPAIRMENT
     Dates: start: 20181030, end: 20181031
  11. CEFZON CAPSULE [Concomitant]
     Dates: start: 20190717, end: 20190724
  12. TOWATHIEM [Concomitant]
     Active Substance: ACETAMINOPHEN\CAFFEINE\PROMETHAZINE\SALICYLAMIDE
     Indication: NASOPHARYNGITIS
     Dates: start: 20161208, end: 20161223
  13. ALENDRONATE [Concomitant]
     Active Substance: ALENDRONATE SODIUM
     Indication: OSTEOPOROSIS
     Dates: start: 20190324, end: 20190908
  14. IBUPROFEN. [Concomitant]
     Active Substance: IBUPROFEN
     Dates: start: 20170329, end: 20170330
  15. ALLYLISOPROPYLACETYLUREA [Concomitant]
     Active Substance: APRONALIDE
     Indication: HEADACHE
     Dates: start: 20170224, end: 20170226
  16. ANHYDROUS CAFFEINE [Concomitant]
     Active Substance: CAFFEINE
     Indication: RHINITIS
     Dates: start: 20170319, end: 20170319
  17. HIRUDOID [Concomitant]
     Active Substance: GLYCOSAMINOGLYCANS
     Indication: DRY SKIN
     Dates: start: 20170405
  18. MIYA?BM [Concomitant]
     Active Substance: CLOSTRIDIUM BUTYRICUM SPORES STRAIN M-55
     Indication: GASTROENTERITIS
     Dates: start: 20190318
  19. UNASYN [Concomitant]
     Active Substance: AMPICILLIN SODIUM\SULBACTAM SODIUM
     Indication: BRONCHITIS BACTERIAL
     Route: 042
     Dates: start: 20190227, end: 20190228
  20. RILMAZAFONE HYDROCHLORIDE [Concomitant]
     Active Substance: RILMAZAFONE HYDROCHLORIDE
     Indication: INSOMNIA
     Dates: start: 20190919
  21. BESOFTEN [Concomitant]
     Active Substance: PENTOSAN POLYSULFATE SODIUM
     Indication: DRY SKIN
     Dates: start: 20170405
  22. BAKTAR [Concomitant]
     Active Substance: SULFAMETHOXAZOLE\TRIMETHOPRIM
     Indication: INFECTION
     Dates: start: 20170105, end: 20170303
  23. ARGAMATE [Concomitant]
     Active Substance: CALCIUM POLYSTYRENE SULFONATE
     Dates: start: 20170428
  24. IBUPROFEN. [Concomitant]
     Active Substance: IBUPROFEN
     Dates: start: 20170319, end: 20170319
  25. ANHYDROUS CAFFEINE [Concomitant]
     Active Substance: CAFFEINE
     Dates: start: 20170615, end: 20170615
  26. GUAIFENESIN. [Concomitant]
     Active Substance: GUAIFENESIN
     Indication: RHINITIS
     Dates: start: 20170331, end: 20170401
  27. FORMOTEROL FUMARATE DIHYDRATE [Concomitant]
     Active Substance: FORMOTEROL FUMARATE DIHYDRATE
     Indication: ASTHMA
     Dates: start: 20181030
  28. VILANTEROL TRIFENATATE [Concomitant]
     Active Substance: VILANTEROL TRIFENATATE
     Indication: ASTHMA
     Dates: start: 20190222
  29. POLARAMINE [Concomitant]
     Active Substance: DEXCHLORPHENIRAMINE MALEATE
     Indication: PRURITUS
     Dates: start: 20190226, end: 20190301
  30. ALENDRONATE [Concomitant]
     Active Substance: ALENDRONATE SODIUM
     Indication: OSTEOPOROSIS
     Dates: start: 20190324
  31. MIYA?BM [Concomitant]
     Active Substance: CLOSTRIDIUM BUTYRICUM SPORES STRAIN M-55
     Indication: ENTEROCOLITIS
     Dates: start: 20190327, end: 20190910
  32. LANSOPRAZOLE. [Concomitant]
     Active Substance: LANSOPRAZOLE
     Indication: GASTRITIS
     Dates: start: 20161230, end: 20170710
  33. ANHYDROUS CAFFEINE [Concomitant]
     Active Substance: CAFFEINE
     Dates: start: 20170329, end: 20170330
  34. DIHYDROCODEINE PHOSPHATE [Concomitant]
     Active Substance: DIHYDROCODEINE PHOSPHATE
     Indication: RHINITIS
     Dates: start: 20170331, end: 20170401
  35. PROMETHAZINE METHYLENE DISALICYLATE [Concomitant]
     Active Substance: PROMETHAZINE METHYLENEDISALICYLATE
     Indication: RHINITIS
     Dates: start: 20170331, end: 20170401
  36. ENCRUSE [Concomitant]
     Active Substance: UMECLIDINIUM BROMIDE
     Indication: CHRONIC OBSTRUCTIVE PULMONARY DISEASE
     Dates: start: 20190222
  37. BOSMIN [Concomitant]
     Active Substance: EPINEPHRINE
     Indication: ASTHMA
     Dates: start: 20190222, end: 20190222
  38. VENETLIN [Concomitant]
     Active Substance: ALBUTEROL SULFATE
     Dates: start: 20190223, end: 20190307
  39. RHYTHMY [Concomitant]
     Active Substance: RILMAZAFONE HYDROCHLORIDE
     Indication: INSOMNIA
     Dates: start: 20161227, end: 20170115
  40. ARGAMATE [Concomitant]
     Active Substance: CALCIUM POLYSTYRENE SULFONATE
     Dates: start: 20170329, end: 20170405
  41. ALLYLISOPROPYLACETYLUREA [Concomitant]
     Active Substance: APRONALIDE
     Dates: start: 20170319, end: 20170319
  42. XYZAL [Concomitant]
     Active Substance: LEVOCETIRIZINE DIHYDROCHLORIDE
     Indication: RASH
     Dates: start: 20170303, end: 20170317
  43. TAMIFLU [Concomitant]
     Active Substance: OSELTAMIVIR PHOSPHATE
     Indication: INFLUENZA
     Dates: start: 20190115, end: 20190119
  44. BESOFTEN [Concomitant]
     Active Substance: PENTOSAN POLYSULFATE SODIUM
     Indication: PRURITUS
     Dates: start: 20190306, end: 20190307
  45. METOCLOPRAMIDE HYDROCHLORIDE. [Concomitant]
     Active Substance: METOCLOPRAMIDE HYDROCHLORIDE
     Indication: GASTROENTERITIS
     Dates: start: 20190318, end: 20190318
  46. SULTANOL [Concomitant]
     Active Substance: ALBUTEROL SULFATE
     Indication: ASTHMA
     Dosage: INHALER
     Dates: start: 20190416
  47. ARGAMATE [Concomitant]
     Active Substance: CALCIUM POLYSTYRENE SULFONATE
     Indication: HYPERKALAEMIA
     Dates: start: 20170125, end: 20170201
  48. ARGAMATE [Concomitant]
     Active Substance: CALCIUM POLYSTYRENE SULFONATE
     Dates: start: 20170306, end: 20170308
  49. IBUPROFEN. [Concomitant]
     Active Substance: IBUPROFEN
     Indication: HEADACHE
     Dates: start: 20170224, end: 20170226
  50. IBUPROFEN. [Concomitant]
     Active Substance: IBUPROFEN
     Dates: start: 20170615, end: 20170615
  51. ANHYDROUS CAFFEINE [Concomitant]
     Active Substance: CAFFEINE
     Dates: start: 20170331, end: 20170401
  52. BELLADONNA [Concomitant]
     Active Substance: ATROPA BELLADONNA\HOMEOPATHICS
     Indication: RHINITIS
     Dates: start: 20170331, end: 20170401
  53. ROPION [Concomitant]
     Active Substance: FLURBIPROFEN AXETIL
     Indication: BRONCHITIS BACTERIAL
     Dates: start: 20190222, end: 20190222
  54. SENNOSIDE [Concomitant]
     Active Substance: SENNOSIDES
     Indication: CONSTIPATION
     Dates: start: 20190310, end: 20190311
  55. ATEZOLIZUMAB. [Suspect]
     Active Substance: ATEZOLIZUMAB
     Indication: NON-SMALL CELL LUNG CANCER STAGE IV
     Dosage: MOST RECENT DOSE OF ATEZOLIZUMAB WAS ADMINISTERED ON 12/DEC/2016 AT 10:58 (CYCLE 1 DAY 1).?ON 10/APR
     Route: 041
     Dates: start: 20161212
  56. LACTEC [Concomitant]
     Active Substance: CALCIUM CHLORIDE ANHYDROUS\POTASSIUM CHLORIDE\SODIUM CHLORIDE\SODIUM LACTATE
     Indication: RENAL IMPAIRMENT
     Dates: start: 20161229, end: 20161229
  57. BESOFTEN [Concomitant]
     Active Substance: PENTOSAN POLYSULFATE SODIUM
     Indication: PRURITUS
     Dates: start: 20170104, end: 20170117
  58. ALLYLISOPROPYLACETYLUREA [Concomitant]
     Active Substance: APRONALIDE
     Dates: start: 20170329, end: 20170330
  59. ANHYDROUS CAFFEINE [Concomitant]
     Active Substance: CAFFEINE
     Indication: HEADACHE
     Dates: start: 20170224, end: 20170226
  60. SALICYLAMIDE [Concomitant]
     Active Substance: SALICYLAMIDE
     Indication: RHINITIS
     Dates: start: 20170331, end: 20170401
  61. AZ COMBINATION [Concomitant]
     Indication: STOMATITIS
     Dates: start: 20181114, end: 20181127
  62. LOXOPROFEN [Concomitant]
     Active Substance: LOXOPROFEN
     Indication: BRONCHITIS BACTERIAL
     Dates: start: 20190221, end: 20190221
  63. CEFAZOLIN SODIUM. [Concomitant]
     Active Substance: CEFAZOLIN SODIUM
     Indication: BRONCHITIS BACTERIAL
     Dates: start: 20190225, end: 20190226
  64. MIYA?BM [Concomitant]
     Active Substance: CLOSTRIDIUM BUTYRICUM SPORES STRAIN M-55
     Indication: DIARRHOEA
     Dates: start: 20190226, end: 20190227
  65. CALONAL [Concomitant]
     Active Substance: ACETAMINOPHEN
     Indication: GASTROENTERITIS
     Dates: start: 20190318, end: 20190318
  66. NADIFLOXACIN [Concomitant]
     Active Substance: NADIFLOXACIN
     Dates: start: 20190717, end: 20190718

REACTIONS (2)
  - Immune system disorder [Recovered/Resolved]
  - Immune system disorder [Recovered/Resolved]

NARRATIVE: CASE EVENT DATE: 20161222
